FAERS Safety Report 6084747-X (Version None)
Quarter: 2009Q1

REPORT INFORMATION
  Report Type: 
  Country: None (occurrence: None)
  Receive Date: 20090217
  Receipt Date: 20090204
  Transmission Date: 20090719
  Serious: Yes (Hospitalization)
  Sender: FDA-Public Use
  Company Number: IPS_01468_2009

PATIENT
  Age: 55 Year
  Sex: Female

DRUGS (1)
  1. APO-GO (APO-GO - APOMORPHINE HYDROCHLORIDE) (NOT SPECIFIED) [Suspect]
     Indication: DRUG USE FOR UNKNOWN INDICATION
     Dosage: DF FOR UNKNOWN, SUBCUTANEOUS
     Route: 058
     Dates: start: 20090121

REACTIONS (3)
  - HEADACHE [None]
  - INFLAMMATION [None]
  - MENINGITIS ASEPTIC [None]
